FAERS Safety Report 8587098-4 (Version None)
Quarter: 2012Q3

REPORT INFORMATION
  Report Type: 
  Country: None (occurrence: None)
  Receive Date: 20120810
  Receipt Date: 20120711
  Transmission Date: 20120928
  Serious: No
  Sender: FDA-Public Use
  Company Number: US-ASTRAZENECA-2012SE47783

PATIENT
  Age: 76 Year
  Sex: Male
  Weight: 77.6 kg

DRUGS (8)
  1. PANTOPRAZOLE SODIUM [Concomitant]
  2. PLAVIX [Concomitant]
     Dates: end: 20120710
  3. BRILINTA [Suspect]
     Indication: STENT PLACEMENT
     Route: 048
     Dates: start: 20120711
  4. CARAFATE [Concomitant]
  5. ASPIRIN [Concomitant]
  6. DILTIAZEM [Concomitant]
  7. LISINOPRIL AND HYDROCHLOROTHIAZIDE [Suspect]
     Dosage: 20/25 MG
     Route: 048
  8. SOTALOL HCL [Concomitant]

REACTIONS (5)
  - DYSPNOEA [None]
  - FEELING ABNORMAL [None]
  - NAUSEA [None]
  - OFF LABEL USE [None]
  - HYPOTENSION [None]
